FAERS Safety Report 7973562-5 (Version None)
Quarter: 2011Q4

REPORT INFORMATION
  Report Type: 
  Country: None (occurrence: None)
  Receive Date: 20111213
  Receipt Date: 20111203
  Transmission Date: 20120403
  Serious: Yes (Hospitalization, Other)
  Sender: FDA-Public Use
  Company Number: FI-SHIRE-ALL1-2011-04769

PATIENT
  Sex: Male
  Weight: 69 kg

DRUGS (2)
  1. TRANEKSAMACID [Suspect]
     Indication: PRODUCT USED FOR UNKNOWN INDICATION
     Dosage: UNK, UNKNOWN
     Route: 065
  2. FIRAZYR [Suspect]
     Indication: HAEMANGIOMA CONGENITAL
     Dosage: UNK, UNKNOWN
     Route: 058
     Dates: start: 20110101

REACTIONS (6)
  - MUSCLE SPASMS [None]
  - PAIN IN EXTREMITY [None]
  - FATIGUE [None]
  - ABDOMINAL PAIN UPPER [None]
  - LOSS OF CONSCIOUSNESS [None]
  - OEDEMA PERIPHERAL [None]
